FAERS Safety Report 20127686 (Version 1)
Quarter: 2021Q4

REPORT INFORMATION
  Report Type: Spontaneous
  Country: CA (occurrence: CA)
  Receive Date: 20211129
  Receipt Date: 20211129
  Transmission Date: 20220303
  Serious: Yes (Life-Threatening)
  Sender: FDA-Public Use
  Company Number: CA-TEVA-2021-CA-1980327

PATIENT
  Sex: Male

DRUGS (17)
  1. SULFAMETHOXAZOLE\TRIMETHOPRIM [Suspect]
     Active Substance: SULFAMETHOXAZOLE\TRIMETHOPRIM
     Route: 065
  2. ACETAMINOPHEN [Concomitant]
     Active Substance: ACETAMINOPHEN
  3. AMOXICILLIN [Concomitant]
     Active Substance: AMOXICILLIN
  4. ASPIRIN [Concomitant]
     Active Substance: ASPIRIN
     Route: 065
  5. ATORVASTATIN [Concomitant]
     Active Substance: ATORVASTATIN
  6. CALCITRIOL [Concomitant]
     Active Substance: CALCITRIOL
  7. CALCIUM CARBONATE [Concomitant]
     Active Substance: CALCIUM CARBONATE
  8. CYANOCOBALAMIN [Concomitant]
     Active Substance: CYANOCOBALAMIN
  9. LACTULOSE [Concomitant]
     Active Substance: LACTULOSE
  10. MAGNESIUM HYDROXIDE [Concomitant]
     Active Substance: MAGNESIUM HYDROXIDE
  11. MEROPENEM [Concomitant]
     Active Substance: MEROPENEM
  12. OXYCODONE [Concomitant]
     Active Substance: OXYCODONE
  13. PANTOPRAZOLE [Concomitant]
     Active Substance: PANTOPRAZOLE
  14. RIVAROXABAN [Concomitant]
     Active Substance: RIVAROXABAN
     Route: 065
  15. SENNOSIDES [Concomitant]
     Active Substance: SENNOSIDES
  16. SOLIFENACIN [Concomitant]
     Active Substance: SOLIFENACIN
  17. VANCOMYCIN [Concomitant]
     Active Substance: VANCOMYCIN

REACTIONS (4)
  - Skin erosion [Recovering/Resolving]
  - Skin exfoliation [Recovering/Resolving]
  - Stevens-Johnson syndrome [Recovering/Resolving]
  - Urticaria [Recovering/Resolving]
